FAERS Safety Report 17012470 (Version 1)
Quarter: 2019Q4

REPORT INFORMATION
  Report Type: Report from Study
  Country: JP (occurrence: JP)
  Receive Date: 20191108
  Receipt Date: 20191108
  Transmission Date: 20200122
  Serious: Yes (Other)
  Sender: FDA-Public Use
  Company Number: JP-ROCHE-2460381

PATIENT

DRUGS (4)
  1. BEVACIZUMAB. [Suspect]
     Active Substance: BEVACIZUMAB
     Indication: NON-SMALL CELL LUNG CANCER
     Dosage: (DAY 1) IN 21-DAY CYCLES.
     Route: 065
  2. AFATINIB [Suspect]
     Active Substance: AFATINIB
     Indication: EGFR GENE MUTATION
  3. BEVACIZUMAB. [Suspect]
     Active Substance: BEVACIZUMAB
     Indication: EGFR GENE MUTATION
  4. AFATINIB [Suspect]
     Active Substance: AFATINIB
     Indication: NON-SMALL CELL LUNG CANCER
     Dosage: 20, 30, OR 40 MG/DAY (DAYS 1-21)
     Route: 065

REACTIONS (3)
  - Paronychia [Unknown]
  - Diarrhoea [Unknown]
  - Hypertension [Unknown]
